FAERS Safety Report 15176507 (Version 1)
Quarter: 2018Q3

REPORT INFORMATION
  Report Type: Report from Study
  Country: US (occurrence: US)
  Receive Date: 20180720
  Receipt Date: 20180720
  Transmission Date: 20181010
  Serious: No
  Sender: FDA-Public Use
  Company Number: US-AMGEN-USASL2018075865

PATIENT
  Age: 55 Year
  Sex: Female

DRUGS (3)
  1. REPATHA [Suspect]
     Active Substance: EVOLOCUMAB
     Indication: ARTERIOSCLEROSIS
  2. REPATHA [Suspect]
     Active Substance: EVOLOCUMAB
     Indication: TYPE IIA HYPERLIPIDAEMIA
     Dosage: UNK, UNK
     Route: 058
     Dates: start: 20180301
  3. IMIPRAMINE [Concomitant]
     Active Substance: IMIPRAMINE
     Indication: MUSCLE SPASMS
     Dosage: UNK
     Dates: start: 20180301

REACTIONS (7)
  - Constipation [Unknown]
  - Rhinorrhoea [Unknown]
  - Throat irritation [Unknown]
  - Blood pressure increased [Unknown]
  - Weight increased [Unknown]
  - Pain [Unknown]
  - Nasal congestion [Unknown]

NARRATIVE: CASE EVENT DATE: 2018
